FAERS Safety Report 12145368 (Version 1)
Quarter: 2016Q1

REPORT INFORMATION
  Report Type: Spontaneous
  Country: KR (occurrence: KR)
  Receive Date: 20160304
  Receipt Date: 20160304
  Transmission Date: 20160526
  Serious: Yes (Hospitalization)
  Sender: FDA-Public Use
  Company Number: KR-AMGEN-KORCT2016027070

PATIENT
  Age: 32 Year
  Sex: Male
  Weight: 68.3 kg

DRUGS (43)
  1. RITUXIMAB [Concomitant]
     Active Substance: RITUXIMAB
     Dosage: 678 MG, UNK
     Route: 042
     Dates: start: 20150317, end: 20150317
  2. VINCRISTINE [Concomitant]
     Active Substance: VINCRISTINE
     Dosage: 2 MG, UNK
     Route: 042
     Dates: start: 20150407, end: 20150407
  3. PIPRINHYDRINATE [Concomitant]
     Dosage: 3 MG, UNK
     Route: 042
     Dates: start: 20150317, end: 20150317
  4. MACPERAN [Concomitant]
     Dosage: 15 MG, UNK
     Dates: start: 20150224, end: 20150430
  5. SODIUM BICARBONATE. [Concomitant]
     Active Substance: SODIUM BICARBONATE
     Dosage: 4 G, UNK
     Route: 048
     Dates: start: 20150407, end: 20150430
  6. ALBIS [Concomitant]
     Active Substance: BISMUTH SUBCITRATE\RANITIDINE HYDROCHLORIDE\SUCRALFATE
     Dosage: 200 MG, UNK
     Route: 048
     Dates: start: 20150427, end: 20150520
  7. CYCLOPHOSPHAMIDE. [Concomitant]
     Active Substance: CYCLOPHOSPHAMIDE
     Dosage: 1355 MG, UNK
     Route: 042
     Dates: start: 20150317, end: 20150317
  8. DOXORUBICIN [Concomitant]
     Active Substance: DOXORUBICIN
     Dosage: 90 MG, UNK
     Route: 042
     Dates: start: 20150317, end: 20150317
  9. VINCRISTINE [Concomitant]
     Active Substance: VINCRISTINE
     Dosage: 2 MG, UNK
     Route: 042
     Dates: start: 20150223, end: 20150223
  10. VINCRISTINE [Concomitant]
     Active Substance: VINCRISTINE
     Dosage: 2 MG, UNK
     Route: 042
     Dates: start: 20150429, end: 20150429
  11. NORMAL SALINE [Concomitant]
     Active Substance: SODIUM CHLORIDE
     Dosage: 1000 ML, UNK
     Route: 042
     Dates: start: 20150317, end: 20150319
  12. MACPERAN [Concomitant]
     Dosage: 30 MG, UNK
     Route: 042
     Dates: start: 20150317, end: 20150407
  13. SANCUSO [Concomitant]
     Active Substance: GRANISETRON
     Dosage: 34.3 MG, UNK
     Route: 061
     Dates: start: 20150317, end: 20150407
  14. G-LASTA [Suspect]
     Active Substance: PEGFILGRASTIM
     Dosage: 6 MG, Q3WK
     Route: 058
     Dates: start: 20150318
  15. CYCLOPHOSPHAMIDE. [Concomitant]
     Active Substance: CYCLOPHOSPHAMIDE
     Dosage: 1355 MG, UNK
     Route: 042
     Dates: start: 20150429, end: 20150429
  16. VINCRISTINE [Concomitant]
     Active Substance: VINCRISTINE
     Dosage: 2 MG, UNK
     Route: 042
     Dates: start: 20150317, end: 20150317
  17. PREDNISOLONE. [Concomitant]
     Active Substance: PREDNISOLONE
     Dosage: 100 MG, UNK
     Route: 048
     Dates: start: 20150407, end: 20150407
  18. DEXTROSE. [Concomitant]
     Active Substance: DEXTROSE
     Dosage: 200 ML, UNK
     Route: 042
     Dates: start: 20150317, end: 20150429
  19. ZYLORIC [Concomitant]
     Active Substance: ALLOPURINOL
     Dosage: 200 MG, UNK
     Route: 048
     Dates: start: 20150224, end: 20150225
  20. LYRICA [Concomitant]
     Active Substance: PREGABALIN
     Dosage: 75 MG, UNK
     Route: 048
     Dates: start: 20150422, end: 20150423
  21. DOXORUBICIN [Concomitant]
     Active Substance: DOXORUBICIN
     Dosage: 90 MG, UNK
     Route: 042
     Dates: start: 20150407, end: 20150407
  22. VITAMIN D3 BON [Concomitant]
     Dosage: 2 ML, UNK
     Route: 030
     Dates: start: 20150224, end: 20150224
  23. ACETAMINOPHEN. [Concomitant]
     Active Substance: ACETAMINOPHEN
     Dosage: 650 MG, UNK
     Route: 048
     Dates: start: 20150317, end: 20150407
  24. TANTUM                             /00052302/ [Concomitant]
     Dosage: 300 ML, UNK
     Route: 065
     Dates: start: 20150225, end: 20150225
  25. METHYSOL [Concomitant]
     Dosage: 125 MG, UNK
     Route: 042
     Dates: start: 20150425, end: 20150519
  26. CURAN [Concomitant]
     Dosage: 150 MG, UNK
     Route: 048
     Dates: start: 20150227, end: 20150423
  27. RITUXIMAB [Concomitant]
     Active Substance: RITUXIMAB
     Dosage: 678 MG, UNK
     Route: 042
     Dates: start: 20150223, end: 20150223
  28. CYCLOPHOSPHAMIDE. [Concomitant]
     Active Substance: CYCLOPHOSPHAMIDE
     Dosage: 1355 MG, UNK
     Route: 042
     Dates: start: 20150223, end: 20150223
  29. DOXORUBICIN [Concomitant]
     Active Substance: DOXORUBICIN
     Dosage: 90 MG, UNK
     Route: 042
     Dates: start: 20150223, end: 20150223
  30. PREDNISOLONE. [Concomitant]
     Active Substance: PREDNISOLONE
     Dosage: 50 MG, UNK
     Route: 048
     Dates: start: 20150429, end: 20150430
  31. BACTROBAN [Concomitant]
     Active Substance: MUPIROCIN\MUPIROCIN CALCIUM
     Dosage: 10 G, UNK
     Route: 061
     Dates: start: 20150416, end: 20150430
  32. FAMVIR [Concomitant]
     Active Substance: FAMCICLOVIR
     Dosage: 250 MG, UNK
     Route: 048
     Dates: start: 20150422, end: 20150423
  33. G-LASTA [Suspect]
     Active Substance: PEGFILGRASTIM
     Indication: FEBRILE NEUTROPENIA
     Dosage: 6 MG, Q3WK
     Route: 058
     Dates: start: 20150224
  34. G-LASTA [Suspect]
     Active Substance: PEGFILGRASTIM
     Dosage: 6 MG, Q3WK
     Route: 058
     Dates: start: 20150408
  35. EMEND [Concomitant]
     Active Substance: APREPITANT
     Dosage: 125 MG, UNK
     Route: 048
     Dates: start: 20150224, end: 20150429
  36. CRAVIT [Concomitant]
     Active Substance: LEVOFLOXACIN
     Dosage: 500 MG, UNK
     Route: 048
     Dates: start: 20150427, end: 20150430
  37. G-LASTA [Suspect]
     Active Substance: PEGFILGRASTIM
     Dosage: 6 MG, Q3WK
     Route: 058
     Dates: start: 20150430
  38. RITUXIMAB [Concomitant]
     Active Substance: RITUXIMAB
     Dosage: 678 MG, UNK
     Route: 042
     Dates: start: 20150407, end: 20150407
  39. CYCLOPHOSPHAMIDE. [Concomitant]
     Active Substance: CYCLOPHOSPHAMIDE
     Dosage: 1355 MG, UNK
     Route: 042
     Dates: start: 20150407, end: 20150407
  40. DOXORUBICIN [Concomitant]
     Active Substance: DOXORUBICIN
     Dosage: 90 MG, UNK
     Route: 042
     Dates: start: 20150429, end: 20150429
  41. PREDNISOLONE. [Concomitant]
     Active Substance: PREDNISOLONE
     Dosage: 100 MG, UNK
     Route: 048
     Dates: start: 20150223, end: 20150224
  42. PREDNISOLONE. [Concomitant]
     Active Substance: PREDNISOLONE
     Dosage: 100 MG, UNK
     Route: 048
     Dates: start: 20150317, end: 20150318
  43. MAXPIME [Concomitant]
     Dosage: 4 G, UNK
     Route: 042
     Dates: start: 20150422, end: 20150511

REACTIONS (1)
  - Febrile neutropenia [Recovered/Resolved]

NARRATIVE: CASE EVENT DATE: 20150505
